FAERS Safety Report 7349399-7 (Version None)
Quarter: 2011Q1

REPORT INFORMATION
  Report Type: 
  Country: None (occurrence: None)
  Receive Date: 20110314
  Receipt Date: 20101112
  Transmission Date: 20110831
  Serious: No
  Sender: FDA-Public Use
  Company Number: US-ABBOTT-10P-163-0685602-00

PATIENT
  Sex: Female
  Weight: 43.13 kg

DRUGS (9)
  1. LEVOTHYROXINE [Concomitant]
     Indication: HYPOTHYROIDISM
     Route: 048
  2. VITAMIN B COMPLEX CAP [Concomitant]
     Indication: VITAMIN SUPPLEMENTATION
     Route: 048
  3. PROMETRIUM [Concomitant]
     Indication: HORMONE REPLACEMENT THERAPY
     Route: 048
     Dates: start: 20060101
  4. FOSAMAX [Concomitant]
     Indication: OSTEOPOROSIS
     Route: 048
  5. ESTRACE [Concomitant]
     Indication: HORMONE REPLACEMENT THERAPY
     Route: 048
     Dates: start: 20060101
  6. ZOLOFT [Concomitant]
     Route: 048
     Dates: start: 20100601
  7. DEPAKOTE [Suspect]
     Indication: ANXIETY
     Route: 048
     Dates: start: 20100601, end: 20101105
  8. ZOLOFT [Concomitant]
     Indication: DEPRESSION
     Route: 048
     Dates: end: 20100601
  9. BUSPAR [Concomitant]
     Indication: ANXIETY
     Route: 048
     Dates: start: 20100601

REACTIONS (1)
  - ALOPECIA [None]
